FAERS Safety Report 8696891 (Version 3)
Quarter: 2012Q4

REPORT INFORMATION
  Report Type: Report from Study
  Country: CA (occurrence: CA)
  Receive Date: 20120801
  Receipt Date: 20120918
  Transmission Date: 20130627
  Serious: Yes (Other)
  Sender: FDA-Public Use
  Company Number: CA-ROCHE-1093721

PATIENT
  Age: 57 None
  Sex: Male
  Weight: 106.69 kg

DRUGS (7)
  1. MABTHERA [Suspect]
     Indication: RHEUMATOID ARTHRITIS
     Dosage: Last dose 14/Mar/2012
     Route: 042
     Dates: start: 20120229
  2. HUMULIN R [Concomitant]
  3. HUMULIN N [Concomitant]
  4. PLAQUENIL [Concomitant]
  5. PREDNISONE [Concomitant]
     Dosage: No details available
     Route: 065
  6. PREDNISONE [Concomitant]
     Route: 042
     Dates: start: 20120911
  7. METHOTREXATE [Concomitant]

REACTIONS (2)
  - Chronic obstructive pulmonary disease [Not Recovered/Not Resolved]
  - Infusion related reaction [Unknown]
